FAERS Safety Report 6933947-2 (Version None)
Quarter: 2010Q3

REPORT INFORMATION
  Report Type: 
  Country: None (occurrence: None)
  Receive Date: 20100820
  Receipt Date: 20100809
  Transmission Date: 20110219
  Serious: Yes (Hospitalization, Other)
  Sender: FDA-Public Use
  Company Number: US-PFIZER INC-2010045916

PATIENT
  Sex: Male

DRUGS (4)
  1. CHANTIX [Suspect]
     Indication: SMOKING CESSATION THERAPY
     Dosage: CHANTIX SAMPLE PACKS AND STARTER MONTH PACK
     Dates: start: 20080315, end: 20080601
  2. METOPROLOL [Concomitant]
     Indication: BLOOD PRESSURE
     Dosage: UNK
     Dates: start: 20060101, end: 20090101
  3. OXYCODONE [Concomitant]
     Indication: PAIN
     Dosage: UNK
     Dates: start: 20060101, end: 20090101
  4. LISINOPRIL [Concomitant]
     Indication: BLOOD PRESSURE
     Dosage: UNK
     Dates: start: 20060101, end: 20090101

REACTIONS (3)
  - DEPRESSION [None]
  - HALLUCINATION, AUDITORY [None]
  - SUICIDE ATTEMPT [None]
